FAERS Safety Report 14141473 (Version 2)
Quarter: 2018Q1

REPORT INFORMATION
  Report Type: Report from Study
  Country: ES (occurrence: ES)
  Receive Date: 20171030
  Receipt Date: 20180305
  Transmission Date: 20180508
  Serious: Yes (Other)
  Sender: FDA-Public Use
  Company Number: ES-ROCHE-1775825

PATIENT

DRUGS (3)
  1. DASABUVIR [Interacting]
     Active Substance: DASABUVIR
     Indication: CHRONIC HEPATITIS C
     Route: 065
  2. OMBITASVIR/PARITAPREVIR/RITONAVIR [Interacting]
     Active Substance: OMBITASVIR\PARITAPREVIR\RITONAVIR
     Indication: CHRONIC HEPATITIS C
     Dosage: STRENGTH: 12.5 MG/75MG/50MG
     Route: 065
  3. RIBAVIRIN. [Suspect]
     Active Substance: RIBAVIRIN
     Indication: CHRONIC HEPATITIS C
     Dosage: 1000-1200 MG DAILY
     Route: 065

REACTIONS (9)
  - Infection [Unknown]
  - Pruritus [Unknown]
  - Hypotension [Unknown]
  - Sleep disorder [Unknown]
  - Rash [Unknown]
  - Anaemia [Unknown]
  - Transaminases increased [Unknown]
  - Gastrointestinal disorder [Unknown]
  - Blood bilirubin increased [Unknown]
